FAERS Safety Report 18529366 (Version 1)
Quarter: 2020Q4

REPORT INFORMATION
  Report Type: Spontaneous
  Country: US (occurrence: US)
  Receive Date: 20201120
  Receipt Date: 20201120
  Transmission Date: 20210114
  Serious: No
  Sender: FDA-Public Use
  Company Number: US-BAYER-2020-251172

PATIENT
  Sex: Female

DRUGS (1)
  1. KYLEENA [Suspect]
     Active Substance: LEVONORGESTREL
     Dosage: 17.5 ?G PER DAY, CONTINUOUSLY
     Route: 015
     Dates: start: 2019

REACTIONS (5)
  - Vaginal haemorrhage [None]
  - Breast tenderness [Not Recovered/Not Resolved]
  - Hypomenorrhoea [None]
  - Menstruation delayed [None]
  - Hypomenorrhoea [None]

NARRATIVE: CASE EVENT DATE: 2020
